FAERS Safety Report 23927327 (Version 1)
Quarter: 2024Q2

REPORT INFORMATION
  Report Type: Spontaneous
  Country: US (occurrence: US)
  Receive Date: 20240531
  Receipt Date: 20240531
  Transmission Date: 20240716
  Serious: No
  Sender: FDA-Public Use
  Company Number: US-RADIUS HEALTH INC.-2023US002978

PATIENT
  Age: 50 Year
  Sex: Female
  Weight: 49.433 kg

DRUGS (3)
  1. TYMLOS [Suspect]
     Active Substance: ABALOPARATIDE
     Indication: Senile osteoporosis
     Dosage: 80 MICROGRAM, QD
     Route: 065
     Dates: start: 20230606
  2. TYMLOS [Suspect]
     Active Substance: ABALOPARATIDE
     Dosage: 80 MICROGRAM, QD
     Route: 058
     Dates: end: 202312
  3. EVENITY [Concomitant]
     Active Substance: ROMOSOZUMAB-AQQG
     Indication: Product used for unknown indication

REACTIONS (6)
  - Photophobia [Recovered/Resolved]
  - Musculoskeletal chest pain [Unknown]
  - Headache [Recovered/Resolved]
  - Rash [Unknown]
  - Palpitations [Unknown]
  - Pain in extremity [Unknown]

NARRATIVE: CASE EVENT DATE: 20230606
